FAERS Safety Report 7470586-1 (Version None)
Quarter: 2011Q2

REPORT INFORMATION
  Report Type: 
  Country: None (occurrence: None)
  Receive Date: 20110429
  Receipt Date: 20110418
  Transmission Date: 20111010
  Serious: Yes (Hospitalization)
  Sender: FDA-Public Use
  Company Number: 003576

PATIENT
  Sex: Female

DRUGS (19)
  1. TIQUIZIUM BROMIDE [Concomitant]
  2. KETOPROFEN [Concomitant]
  3. BETAMETHASONE [Concomitant]
  4. FOLIC ACID [Concomitant]
  5. CANDESARTAN CILEXETIL [Concomitant]
  6. PREDNISOLONE [Concomitant]
  7. SODIIUM VALPROATE [Concomitant]
  8. CIMZIA [Suspect]
     Indication: RHEUMATOID ARTHRITIS
     Dosage: SUBCUTANEOUS
     Route: 058
     Dates: start: 20091001, end: 20100527
  9. CIMZIA [Suspect]
     Indication: RHEUMATOID ARTHRITIS
     Dosage: SUBCUTANEOUS
     Route: 058
     Dates: start: 20100722, end: 20100101
  10. LOXOPROFEN SODIUM [Concomitant]
  11. DICLOFENAC SODIUM [Concomitant]
  12. RABEPRAZOLE SODIUM [Concomitant]
  13. SCOPOLAMINE [Concomitant]
  14. CELECOXIB [Concomitant]
  15. ISONIAZID [Concomitant]
  16. METHOTREXATE [Concomitant]
  17. CANDESARTAN CILEXETIL [Concomitant]
  18. REBAMIPIDE [Concomitant]
  19. MOSAPRIDE [Concomitant]

REACTIONS (7)
  - GASTRIC ULCER [None]
  - INTRACRANIAL ANEURYSM [None]
  - SWELLING [None]
  - CONTUSION [None]
  - MENINGIOMA [None]
  - FALL [None]
  - BACK PAIN [None]
